FAERS Safety Report 4557061-9 (Version None)
Quarter: 2005Q1

REPORT INFORMATION
  Report Type: 
  Country: None (occurrence: None)
  Receive Date: 20050120
  Receipt Date: 20040920
  Transmission Date: 20050727
  Serious: Yes (Death)
  Sender: FDA-Public Use
  Company Number: US-GLAXOSMITHKLINE-A0538285A

PATIENT
  Age: 17 Year
  Sex: Female
  Weight: 63.6 kg

DRUGS (2)
  1. ADVAIR DISKUS 100/50 [Suspect]
     Indication: DRUG USE FOR UNKNOWN INDICATION
  2. SEREVENT [Suspect]
     Indication: DRUG USE FOR UNKNOWN INDICATION

REACTIONS (7)
  - ARRHYTHMIA [None]
  - ASTHMA [None]
  - BRONCHIAL OBSTRUCTION [None]
  - CARDIAC FAILURE [None]
  - LUNG INFILTRATION [None]
  - PULMONARY OEDEMA [None]
  - SUDDEN DEATH [None]
